FAERS Safety Report 6056906-3 (Version None)
Quarter: 2009Q1

REPORT INFORMATION
  Report Type: 
  Country: None (occurrence: None)
  Receive Date: 20090129
  Receipt Date: 20090123
  Transmission Date: 20090719
  Serious: Yes (Hospitalization)
  Sender: FDA-Public Use
  Company Number: B0555768A

PATIENT
  Age: 80 Year
  Sex: Male

DRUGS (3)
  1. CLAMOXYL [Suspect]
     Indication: DENTAL CARE
     Route: 048
     Dates: start: 20081217, end: 20081221
  2. VALSARTAN AND HYDROCHLOROTHIAZIDE [Concomitant]
     Dosage: 1UNIT PER DAY
     Route: 048
  3. SINTROM [Concomitant]
     Dosage: 4MG PER DAY
     Route: 048

REACTIONS (12)
  - BLOOD CREATININE INCREASED [None]
  - CONJUNCTIVITIS [None]
  - DERMATITIS EXFOLIATIVE [None]
  - EOSINOPHILIA [None]
  - FACE OEDEMA [None]
  - OEDEMA PERIPHERAL [None]
  - OLIGURIA [None]
  - PRURITUS [None]
  - PURPURA [None]
  - RASH MACULO-PAPULAR [None]
  - RENAL FAILURE ACUTE [None]
  - SKIN EXFOLIATION [None]
